FAERS Safety Report 4433943-3 (Version None)
Quarter: 2004Q3

REPORT INFORMATION
  Report Type: 
  Country: None (occurrence: None)
  Receive Date: 20040825
  Receipt Date: 20040825
  Transmission Date: 20050211
  Serious: Yes (Death)
  Sender: FDA-Public Use
  Company Number: None

PATIENT
  Age: 44 Year

DRUGS (1)
  1. XIGRIS [Suspect]
     Indication: SEPSIS
     Dosage: IV
     Route: 042
     Dates: start: 20040703, end: 20040704

REACTIONS (6)
  - CATHETER SITE HAEMORRHAGE [None]
  - FAECAL OCCULT BLOOD POSITIVE [None]
  - INTERNATIONAL NORMALISED RATIO INCREASED [None]
  - LIVER FUNCTION TEST ABNORMAL [None]
  - MEDICATION ERROR [None]
  - PLATELET COUNT DECREASED [None]
